FAERS Safety Report 15704266 (Version 1)
Quarter: 2018Q4

REPORT INFORMATION
  Report Type: Spontaneous
  Country: US (occurrence: US)
  Receive Date: 20181127
  Receipt Date: 20181127
  Transmission Date: 20190205
  Serious: Yes (Other)
  Sender: FDA-Public Use
  Company Number: None

PATIENT
  Age: 46 Year
  Sex: Female
  Weight: 84.6 kg

DRUGS (8)
  1. BUSPIRONE [Concomitant]
     Active Substance: BUSPIRONE HYDROCHLORIDE
  2. HYROCHORATHIAZIDE [Concomitant]
  3. DESVENLAFAXINE ER SUCCINCTE GENERIC FOR PRISTIQ [Suspect]
     Active Substance: DESVENLAFAXINE SUCCINATE
     Indication: ANXIETY
     Dosage: ?          QUANTITY:1 DF DOSAGE FORM;?
     Route: 048
     Dates: start: 20181115, end: 20181125
  4. TOPIRAMATE. [Concomitant]
     Active Substance: TOPIRAMATE
  5. ATIVAN [Concomitant]
     Active Substance: LORAZEPAM
  6. LISONOPRIL [Concomitant]
  7. LEVOXYL [Concomitant]
     Active Substance: LEVOTHYROXINE SODIUM
  8. METOPROLOL. [Concomitant]
     Active Substance: METOPROLOL

REACTIONS (7)
  - Dry mouth [None]
  - Tremor [None]
  - Constipation [None]
  - Transient aphasia [None]
  - Hallucination [None]
  - Dyskinesia [None]
  - Agitation [None]

NARRATIVE: CASE EVENT DATE: 20181123
